FAERS Safety Report 26047488 (Version 3)
Quarter: 2025Q4

REPORT INFORMATION
  Report Type: Spontaneous
  Country: US (occurrence: US)
  Receive Date: 20251114
  Receipt Date: 20251121
  Transmission Date: 20260117
  Serious: Yes (Other)
  Sender: PFIZER
  Company Number: US-PFIZER INC-202500220220

PATIENT
  Sex: Male
  Weight: 140 kg

DRUGS (2)
  1. HYMPAVZI [Suspect]
     Active Substance: MARSTACIMAB-HNCQ
     Dosage: 150 MG
  2. HYMPAVZI [Suspect]
     Active Substance: MARSTACIMAB-HNCQ
     Dosage: 300 MG

REACTIONS (1)
  - Haemorrhage [Unknown]
